FAERS Safety Report 5119148-1 (Version None)
Quarter: 2006Q3

REPORT INFORMATION
  Report Type: 
  Country: None (occurrence: None)
  Receive Date: 20060929
  Receipt Date: 20060929
  Transmission Date: 20061208
  Serious: Yes (Life-Threatening, Other)
  Sender: FDA-Public Use
  Company Number: None

PATIENT
  Age: 79 Year
  Sex: Male

DRUGS (1)
  1. GASTROGRAFIN [Suspect]
     Dates: start: 20060307, end: 20060307

REACTIONS (1)
  - RENAL FAILURE ACUTE [None]
